FAERS Safety Report 24367702 (Version 1)
Quarter: 2024Q3

REPORT INFORMATION
  Report Type: Report from Study
  Country: IE (occurrence: IE)
  Receive Date: 20240926
  Receipt Date: 20240926
  Transmission Date: 20241016
  Serious: Yes (Hospitalization, Other)
  Sender: GILEAD
  Company Number: IE-GILEAD-2024-0688003

PATIENT
  Age: 69 Year
  Sex: Female

DRUGS (3)
  1. SACITUZUMAB GOVITECAN-HZIY [Suspect]
     Active Substance: SACITUZUMAB GOVITECAN-HZIY
     Indication: Hormone receptor positive breast cancer
     Dosage: 940 MG, C1D1 (10MG/KG)
     Route: 065
     Dates: start: 20240726
  2. SACITUZUMAB GOVITECAN-HZIY [Suspect]
     Active Substance: SACITUZUMAB GOVITECAN-HZIY
     Dosage: UNK, C1D8
     Route: 065
     Dates: start: 20240809
  3. VINORELBINE [Concomitant]
     Active Substance: VINORELBINE TARTRATE
     Dosage: UNK
     Route: 048

REACTIONS (8)
  - Urosepsis [Unknown]
  - Neutropenia [Unknown]
  - Condition aggravated [Unknown]
  - Alopecia [Unknown]
  - Pyrexia [Unknown]
  - COVID-19 [Unknown]
  - Fatigue [Unknown]
  - Product dose omission issue [Unknown]
